FAERS Safety Report 6234758-6 (Version None)
Quarter: 2009Q2

REPORT INFORMATION
  Report Type: 
  Country: None (occurrence: None)
  Receive Date: 20090618
  Receipt Date: 20090609
  Transmission Date: 20091009
  Serious: Yes (Other)
  Sender: FDA-Public Use
  Company Number: ES-AVENTIS-200916028GDDC

PATIENT
  Age: 31 Year
  Sex: Male

DRUGS (3)
  1. RHODOGIL [Suspect]
     Indication: TOOTH ABSCESS
     Dosage: DOSE: 2 DOSE FORMS
     Route: 048
     Dates: start: 20090417, end: 20090421
  2. IBUPROFENO [Suspect]
     Dosage: DOSE: UNK
     Route: 048
     Dates: start: 20090417, end: 20090421
  3. OMEPRAZOLE [Concomitant]
     Dosage: DOSE: UNK

REACTIONS (1)
  - ERYTHEMA MULTIFORME [None]
